FAERS Safety Report 5726886-6 (Version None)
Quarter: 2008Q2

REPORT INFORMATION
  Report Type: 
  Country: None (occurrence: None)
  Receive Date: 20080502
  Receipt Date: 20080423
  Transmission Date: 20081010
  Serious: Yes (Other)
  Sender: FDA-Public Use
  Company Number: US-ABBOTT-08P-163-0448714-00

PATIENT
  Sex: Female
  Weight: 54.026 kg

DRUGS (11)
  1. DEPAKOTE [Suspect]
     Indication: DRUG USE FOR UNKNOWN INDICATION
     Dates: start: 20060101
  2. PREGABALIN [Suspect]
     Indication: FIBROMYALGIA
     Dates: start: 20071228, end: 20080101
  3. PREGABALIN [Suspect]
  4. PREGABALIN [Suspect]
     Dates: start: 20080101, end: 20080116
  5. PREGABALIN [Suspect]
     Dates: start: 20080101
  6. GABAPENTIN [Suspect]
     Indication: MIGRAINE
     Dates: start: 20060101
  7. GABAPENTIN [Suspect]
     Indication: IRRITABLE BOWEL SYNDROME
  8. TIZANIDINE HYDROCHLORIDE [Suspect]
     Indication: DRUG USE FOR UNKNOWN INDICATION
     Dates: start: 20060101
  9. VENLAFAXINE HYDROCHLORIDE [Concomitant]
     Indication: DRUG USE FOR UNKNOWN INDICATION
  10. TOPIRAMATE [Concomitant]
     Indication: DRUG USE FOR UNKNOWN INDICATION
  11. IBUPROFEN TABLETS [Concomitant]
     Indication: DRUG USE FOR UNKNOWN INDICATION
     Dates: start: 20071201

REACTIONS (20)
  - APHONIA [None]
  - BLOOD PRESSURE INCREASED [None]
  - BRUXISM [None]
  - CELLULITIS [None]
  - DEPRESSED MOOD [None]
  - DRY MOUTH [None]
  - DYSGEUSIA [None]
  - FIBROMYALGIA [None]
  - ILL-DEFINED DISORDER [None]
  - MEMORY IMPAIRMENT [None]
  - NAUSEA [None]
  - PAIN [None]
  - POLLAKIURIA [None]
  - SEASONAL ALLERGY [None]
  - SENSORY DISTURBANCE [None]
  - SUICIDAL IDEATION [None]
  - THIRST [None]
  - VISION BLURRED [None]
  - WEIGHT DECREASED [None]
  - WEIGHT INCREASED [None]
